FAERS Safety Report 11197758 (Version 1)
Quarter: 2015Q2

REPORT INFORMATION
  Report Type: Spontaneous
  Country: AU (occurrence: AU)
  Receive Date: 20150617
  Receipt Date: 20150617
  Transmission Date: 20150821
  Serious: Yes (Other)
  Sender: FDA-Public Use
  Company Number: AU-BAXTER-2015BAX026887

PATIENT
  Age: 69 Year
  Sex: Male

DRUGS (3)
  1. BAXTER 0.9% SODIUM CHLORIDE 9G_L INJECTION BP BAG AHB1324 [Suspect]
     Active Substance: SODIUM CHLORIDE
     Indication: PRODUCT USED FOR UNKNOWN INDICATION
     Dosage: VOLUME TO MAKE UP 3 ML
     Route: 065
     Dates: start: 2012, end: 2014
  2. ANTICOAGULANT SODIUM CITRATE 4%, SOLUTION FOR INFUSION [Suspect]
     Active Substance: SODIUM CITRATE
     Indication: PRODUCT USED FOR UNKNOWN INDICATION
     Route: 065
     Dates: start: 2012, end: 2014
  3. GENTAMICIN. [Suspect]
     Active Substance: GENTAMICIN
     Indication: PRODUCT USED FOR UNKNOWN INDICATION
     Route: 065
     Dates: start: 2012, end: 2014

REACTIONS (3)
  - Device breakage [Recovered/Resolved with Sequelae]
  - Device use error [None]
  - Infection [Recovered/Resolved with Sequelae]

NARRATIVE: CASE EVENT DATE: 20140511
